FAERS Safety Report 7555726-8 (Version None)
Quarter: 2011Q2

REPORT INFORMATION
  Report Type: 
  Country: None (occurrence: None)
  Receive Date: 20110617
  Receipt Date: 20110606
  Transmission Date: 20111010
  Serious: Yes (Death)
  Sender: FDA-Public Use
  Company Number: GB-GENENTECH-320110

PATIENT

DRUGS (1)
  1. RITUXIMAB [Suspect]
     Indication: SJOGREN'S SYNDROME
     Dosage: UNK
     Route: 065

REACTIONS (3)
  - PERIPHERAL VASCULAR DISORDER [None]
  - SEPSIS [None]
  - GANGRENE [None]
